FAERS Safety Report 7331496-3 (Version None)
Quarter: 2011Q1

REPORT INFORMATION
  Report Type: 
  Country: None (occurrence: None)
  Receive Date: 20110228
  Receipt Date: 20110228
  Transmission Date: 20110831
  Serious: Yes (Hospitalization)
  Sender: FDA-Public Use
  Company Number: None

PATIENT
  Age: 66 Year
  Sex: Female
  Weight: 94.2 kg

DRUGS (1)
  1. ROCURONIUM BROMIDE [Suspect]
     Indication: ANKLE OPERATION
     Dates: start: 20110224, end: 20110224

REACTIONS (3)
  - GENERAL PHYSICAL HEALTH DETERIORATION [None]
  - ASTHENIA [None]
  - DELAYED RECOVERY FROM ANAESTHESIA [None]
